FAERS Safety Report 23711612 (Version 2)
Quarter: 2024Q2

REPORT INFORMATION
  Report Type: Spontaneous
  Country: US (occurrence: None)
  Receive Date: 20240405
  Receipt Date: 20240524
  Transmission Date: 20240715
  Serious: No
  Sender: FDA-Public Use
  Company Number: 2024A053645

PATIENT

DRUGS (2)
  1. BUDESONIDE\FORMOTEROL [Suspect]
     Active Substance: BUDESONIDE\FORMOTEROL
     Indication: Asthma
     Dosage: 160/4.5, UNKNOWN UNKNOWN
     Route: 055
  2. TRELEGY ELLIPTA [Concomitant]
     Active Substance: FLUTICASONE FUROATE\UMECLIDINIUM BROMIDE\VILANTEROL TRIFENATATE

REACTIONS (7)
  - Nervousness [Unknown]
  - Device use issue [Unknown]
  - Drug dose omission by device [Unknown]
  - Device defective [Unknown]
  - Incorrect dose administered by device [Unknown]
  - Extra dose administered [Unknown]
  - Wrong technique in device usage process [Unknown]
